FAERS Safety Report 25075151 (Version 1)
Quarter: 2025Q1

REPORT INFORMATION
  Report Type: Spontaneous
  Country: US (occurrence: None)
  Receive Date: 20250313
  Receipt Date: 20250313
  Transmission Date: 20250408
  Serious: Yes (Hospitalization, Other)
  Sender: FDA-CTU
  Company Number: None

PATIENT
  Age: 0 Year
  Sex: Male
  Weight: 1.75 kg

DRUGS (7)
  1. LURASIDONE [Suspect]
     Active Substance: LURASIDONE
     Indication: Bipolar disorder
     Dates: start: 20220323
  2. FLUOXETINE [Suspect]
     Active Substance: FLUOXETINE HYDROCHLORIDE
     Dates: start: 20220323
  3. PROPRANOLOL [Suspect]
     Active Substance: PROPRANOLOL HYDROCHLORIDE
     Dates: start: 20220323
  4. TOPIRAMATE [Suspect]
     Active Substance: TOPIRAMATE
     Dates: start: 20220323, end: 20220518
  5. PANTOPRAZOLE [Suspect]
     Active Substance: PANTOPRAZOLE
     Dates: start: 20220323
  6. METFORMIN [Suspect]
     Active Substance: METFORMIN HYDROCHLORIDE
     Dates: start: 20220323, end: 20220420
  7. PROGESTERONE [Suspect]
     Active Substance: PROGESTERONE
     Dates: start: 20220323, end: 20220601

REACTIONS (8)
  - Maternal drugs affecting foetus [None]
  - Neonatal respiratory distress [None]
  - Premature baby [None]
  - Mechanical ventilation complication [None]
  - Treatment failure [None]
  - Infantile apnoea [None]
  - Bradycardia [None]
  - Poor feeding infant [None]

NARRATIVE: CASE EVENT DATE: 20221028
